FAERS Safety Report 21012160 (Version 6)
Quarter: 2022Q4

REPORT INFORMATION
  Report Type: Spontaneous
  Country: FR (occurrence: FR)
  Receive Date: 20220627
  Receipt Date: 20221214
  Transmission Date: 20230113
  Serious: Yes (Death, Life-Threatening, Hospitalization, Other)
  Sender: FDA-Public Use
  Company Number: FR-SA-2022SA245392

PATIENT
  Age: 96 Year
  Sex: Female

DRUGS (9)
  1. AMOXICILLIN\CLAVULANIC ACID [Suspect]
     Active Substance: AMOXICILLIN\CLAVULANIC ACID
     Indication: Acute pulmonary oedema
     Dosage: UNK
     Route: 048
     Dates: start: 20191026, end: 20191028
  2. AMOXICILLIN\CLAVULANIC ACID [Suspect]
     Active Substance: AMOXICILLIN\CLAVULANIC ACID
     Indication: Pneumonia
  3. LOVENOX [Suspect]
     Active Substance: ENOXAPARIN SODIUM
     Indication: Acute pulmonary oedema
     Dosage: 1 DF
     Dates: start: 2019, end: 2019
  4. LOVENOX [Suspect]
     Active Substance: ENOXAPARIN SODIUM
     Indication: Pneumonia
  5. LANSOPRAZOLE [Suspect]
     Active Substance: LANSOPRAZOLE
     Dosage: UNK
  6. FUROSEMIDE [Concomitant]
     Active Substance: FUROSEMIDE
     Indication: Acute pulmonary oedema
     Dosage: UNK
  7. FUROSEMIDE [Concomitant]
     Active Substance: FUROSEMIDE
     Indication: Pneumonia
  8. ISOSORBIDE DINITRATE [Concomitant]
     Active Substance: ISOSORBIDE DINITRATE
     Indication: Acute pulmonary oedema
     Dosage: UNK
  9. ISOSORBIDE DINITRATE [Concomitant]
     Active Substance: ISOSORBIDE DINITRATE
     Indication: Pneumonia

REACTIONS (8)
  - Generalised bullous fixed drug eruption [Fatal]
  - Blister [Fatal]
  - Condition aggravated [Fatal]
  - Septic shock [Fatal]
  - Multiple organ dysfunction syndrome [Fatal]
  - Cardiac failure [Fatal]
  - Renal failure [Fatal]
  - Product prescribing error [Fatal]

NARRATIVE: CASE EVENT DATE: 20191028
